FAERS Safety Report 5914261-0 (Version None)
Quarter: 2008Q4

REPORT INFORMATION
  Report Type: 
  Country: None (occurrence: None)
  Receive Date: 20081009
  Receipt Date: 20080925
  Transmission Date: 20090506
  Serious: Yes (Other)
  Sender: FDA-Public Use
  Company Number: US-ELI_LILLY_AND_COMPANY-US200810001941

PATIENT
  Age: 45 Year
  Sex: Female

DRUGS (3)
  1. EVISTA [Suspect]
     Dosage: 60 MG, DAILY (1/D)
     Route: 065
     Dates: start: 20040101, end: 20060101
  2. EFFEXOR [Concomitant]
     Indication: HOT FLUSH
     Dosage: UNK, UNKNOWN
     Route: 065
  3. SINGULAIR [Concomitant]
     Indication: RHINITIS SEASONAL
     Dosage: UNK, UNKNOWN
     Route: 065

REACTIONS (5)
  - BREAST CANCER [None]
  - BREAST CANCER FEMALE [None]
  - ENDOMETRIAL HYPERTROPHY [None]
  - HOT FLUSH [None]
  - SEASONAL ALLERGY [None]
